FAERS Safety Report 6375307-1 (Version None)
Quarter: 2009Q3

REPORT INFORMATION
  Report Type: 
  Country: None (occurrence: None)
  Receive Date: 20090924
  Receipt Date: 20090919
  Transmission Date: 20100115
  Serious: Yes (Other)
  Sender: FDA-Public Use
  Company Number: A0808709A

PATIENT
  Age: 60 Year
  Sex: Female

DRUGS (2)
  1. TYKERB [Suspect]
     Dosage: 1250MG PER DAY
     Route: 065
     Dates: start: 20080327, end: 20090718
  2. CAPECITABINE [Suspect]
     Dosage: 2000MGM2 CYCLIC
     Dates: start: 20080327, end: 20090718

REACTIONS (9)
  - DISEASE PROGRESSION [None]
  - DYSPHAGIA [None]
  - HYPERBILIRUBINAEMIA [None]
  - MUCOSAL INFLAMMATION [None]
  - NAUSEA [None]
  - PALMAR-PLANTAR ERYTHRODYSAESTHESIA SYNDROME [None]
  - PARONYCHIA [None]
  - RASH [None]
  - VOMITING [None]
